FAERS Safety Report 9400563 (Version 1)
Quarter: 2013Q3

REPORT INFORMATION
  Report Type: Spontaneous
  Country: SE (occurrence: SE)
  Receive Date: 20130711
  Receipt Date: 20130711
  Transmission Date: 20140515
  Serious: Yes (Hospitalization)
  Sender: FDA-Public Use
  Company Number: IPC201307-000258

PATIENT
  Age: 66 Year
  Sex: Male

DRUGS (1)
  1. METFORMIN HYDROCHLORIDE [Suspect]

REACTIONS (14)
  - Shock [None]
  - Toxicity to various agents [None]
  - Back pain [None]
  - Fatigue [None]
  - Loss of consciousness [None]
  - Dyspnoea [None]
  - Blood pressure increased [None]
  - Nausea [None]
  - Vomiting [None]
  - No therapeutic response [None]
  - Oliguria [None]
  - Blood creatinine increased [None]
  - Continuous haemodiafiltration [None]
  - Blood lactic acid increased [None]
